FAERS Safety Report 9580475 (Version 1)
Quarter: 2013Q4

REPORT INFORMATION
  Report Type: Spontaneous
  Country: CA (occurrence: CA)
  Receive Date: 20131002
  Receipt Date: 20131002
  Transmission Date: 20140711
  Serious: Yes (Hospitalization, Other)
  Sender: FDA-Public Use
  Company Number: CA-009507513-1310CAN000520

PATIENT
  Age: 25 Year
  Sex: Male

DRUGS (1)
  1. TEMODAL [Suspect]
     Indication: RHABDOMYOSARCOMA
     Dosage: 170 MG, QD
     Dates: start: 20130901, end: 20130917

REACTIONS (4)
  - Malaise [Unknown]
  - Disease progression [Unknown]
  - Drug ineffective [Unknown]
  - Off label use [Unknown]
